FAERS Safety Report 7634655-5 (Version None)
Quarter: 2011Q3

REPORT INFORMATION
  Report Type: 
  Country: None (occurrence: None)
  Receive Date: 20110725
  Receipt Date: 20110715
  Transmission Date: 20111222
  Serious: Yes (Other)
  Sender: FDA-Public Use
  Company Number: US-CELGENEUS-163-21880-11071736

PATIENT
  Sex: Female
  Weight: 87.5 kg

DRUGS (11)
  1. EXTRA STRENGTH TYLENOL [Concomitant]
     Route: 065
  2. REVLIMID [Suspect]
     Indication: LYMPHOMA
     Dosage: 15 MILLIGRAM
     Route: 048
     Dates: start: 20110211, end: 20110602
  3. MIRALAX [Concomitant]
     Route: 065
  4. CALCIUM CITRATE WITH VITAMIN D3 [Concomitant]
     Route: 065
  5. ASPIRIN [Concomitant]
     Route: 065
  6. SYNTHROID [Concomitant]
     Route: 065
  7. NAPROXEN (ALEVE) [Concomitant]
     Route: 065
  8. FLAX SEED [Concomitant]
     Route: 065
  9. CRESTOR [Concomitant]
     Route: 065
  10. LORAZEPAM [Concomitant]
     Route: 065
  11. ARTIFICIAL TEARS [Concomitant]
     Route: 065

REACTIONS (4)
  - BREAST CANCER [None]
  - FUNGAL SKIN INFECTION [None]
  - HERPES ZOSTER [None]
  - CELLULITIS [None]
